FAERS Safety Report 6992617-5 (Version None)
Quarter: 2010Q3

REPORT INFORMATION
  Report Type: 
  Country: None (occurrence: None)
  Receive Date: 20100917
  Receipt Date: 20100909
  Transmission Date: 20110219
  Serious: Yes (Death, Hospitalization)
  Sender: FDA-Public Use
  Company Number: US-ROCHE-726868

PATIENT
  Age: 71 Year
  Sex: Male
  Weight: 60 kg

DRUGS (12)
  1. MYCOPHENOLATE MOFETIL [Suspect]
     Indication: IMMUNOSUPPRESSION
     Route: 048
     Dates: start: 20090929, end: 20100608
  2. MYCOPHENOLATE MOFETIL [Suspect]
     Route: 048
     Dates: start: 20081014
  3. PREDNISONE [Suspect]
     Indication: IMMUNOSUPPRESSION
     Route: 048
     Dates: start: 20081118
  4. NEPHRO-VITE [Concomitant]
     Dates: start: 20081018
  5. ALENDRONATE SODIUM [Concomitant]
     Dates: start: 20090215
  6. ACETYLSALICYLIC ACID [Concomitant]
     Dates: start: 20090201, end: 20100517
  7. TAMSULOSIN HYDROCHLORIDE [Concomitant]
     Dates: start: 20081013
  8. PRILOSEC [Concomitant]
     Dates: start: 20081018
  9. FOLIC ACID [Concomitant]
     Dosage: DRUG: FOLATE
     Dates: start: 20081018
  10. CITRACAL + D [Concomitant]
  11. METOPROLOL [Concomitant]
     Dates: start: 20000201
  12. ZOCOR [Concomitant]
     Dates: start: 20090204

REACTIONS (2)
  - BRAIN MASS [None]
  - DIFFUSE LARGE B-CELL LYMPHOMA [None]
